FAERS Safety Report 7224266-8 (Version None)
Quarter: 2011Q1

REPORT INFORMATION
  Report Type: 
  Country: None (occurrence: None)
  Receive Date: 20110105
  Receipt Date: 20101220
  Transmission Date: 20110831
  Serious: Yes (Other)
  Sender: FDA-Public Use
  Company Number: 2010P1003480

PATIENT
  Age: 82 Year
  Sex: Male
  Weight: 99.7913 kg

DRUGS (10)
  1. TRAMADOL HCL [Concomitant]
  2. VITAMIN D [Concomitant]
  3. FENTANYL-50 [Suspect]
     Indication: ARTHRITIS
     Dosage: 50 MCG/HR; Q60H; TDER, 50 MCG/HR; Q72H; TDER
     Route: 062
     Dates: start: 20050401, end: 20090101
  4. SENNA LAX [Concomitant]
  5. SOTALOL [Concomitant]
  6. COLACE [Concomitant]
  7. MULTI-VITAMIN [Concomitant]
  8. WARFARIN [Concomitant]
  9. NEXIUM [Concomitant]
  10. CITALOPRAM [Concomitant]

REACTIONS (14)
  - GASTRITIS [None]
  - DIARRHOEA [None]
  - CHOLECYSTECTOMY [None]
  - CONSTIPATION [None]
  - DRUG EFFECT DECREASED [None]
  - CHILLS [None]
  - ANXIETY [None]
  - KNEE ARTHROPLASTY [None]
  - ATRIAL FLUTTER [None]
  - ATRIAL FIBRILLATION [None]
  - ABDOMINAL PAIN UPPER [None]
  - DYSPHAGIA [None]
  - ROTATOR CUFF SYNDROME [None]
  - APHAGIA [None]
